FAERS Safety Report 19255633 (Version 2)
Quarter: 2021Q2

REPORT INFORMATION
  Report Type: Spontaneous
  Country: CZ (occurrence: CZ)
  Receive Date: 20210513
  Receipt Date: 20210519
  Transmission Date: 20210717
  Serious: No
  Sender: FDA-Public Use
  Company Number: CZ-ROCHE-2829788

PATIENT
  Age: 54 Year

DRUGS (1)
  1. OCREVUS [Suspect]
     Active Substance: OCRELIZUMAB
     Indication: MULTIPLE SCLEROSIS
     Dosage: 29/SEP/2020 PATIENT HAD LAST INFUSION OF OCREVUS. DATE OF COMMENCING OF ADMINISTRATION WERE: 22/APR
     Route: 042

REACTIONS (1)
  - COVID-19 [Unknown]

NARRATIVE: CASE EVENT DATE: 20210205
